FAERS Safety Report 6175726-2 (Version None)
Quarter: 2009Q2

REPORT INFORMATION
  Report Type: 
  Country: None (occurrence: None)
  Receive Date: 20090501
  Receipt Date: 20090424
  Transmission Date: 20091009
  Serious: Yes (Other)
  Sender: FDA-Public Use
  Company Number: US-PFIZER INC-2006084545

PATIENT
  Sex: Female
  Weight: 53 kg

DRUGS (5)
  1. PROVERA [Suspect]
     Indication: HORMONE REPLACEMENT THERAPY
     Dosage: 10 MG, 1X/DAY
     Route: 048
     Dates: start: 19850101, end: 19880101
  2. PREMARIN [Suspect]
     Indication: HORMONE REPLACEMENT THERAPY
     Dosage: 0.625 MG, 1X/DAY
     Route: 065
     Dates: start: 19850101, end: 19900101
  3. PREMARIN [Suspect]
     Dosage: 1.25 MG, 1X/DAY
     Dates: start: 19900101, end: 19930101
  4. AMEN [Suspect]
     Indication: HORMONE REPLACEMENT THERAPY
     Dosage: 10 MG, 1X/DAY
     Route: 065
     Dates: start: 19880101, end: 19900101
  5. AMEN [Suspect]
     Dosage: 5 MG, 1X/DAY
     Dates: start: 19910101, end: 19930101

REACTIONS (1)
  - BREAST CANCER FEMALE [None]
